FAERS Safety Report 8842463 (Version 2)
Quarter: 2012Q4

REPORT INFORMATION
  Report Type: 
  Country: US (occurrence: US)
  Receive Date: 20121016
  Receipt Date: 20121129
  Transmission Date: 20130627
  Serious: Yes (Other)
  Sender: FDA-Public Use
  Company Number: US-BRISTOL-MYERS SQUIBB COMPANY-17024514

PATIENT
  Age: 69 Year
  Sex: Female

DRUGS (1)
  1. ORENCIA [Suspect]
     Indication: RHEUMATOID ARTHRITIS
     Dosage: last infusion:21SEP2012
1st dose:5JUN2012 and 2nd dose:22JUN2012.
     Route: 042
     Dates: start: 20120605

REACTIONS (2)
  - Accident [Unknown]
  - Intervertebral disc disorder [Unknown]
